FAERS Safety Report 9109138 (Version 1)
Quarter: 2013Q1

REPORT INFORMATION
  Report Type: Spontaneous
  Country: CO (occurrence: CO)
  Receive Date: 20130222
  Receipt Date: 20130222
  Transmission Date: 20140127
  Serious: Yes (Other)
  Sender: FDA-Public Use
  Company Number: CO-AMGEN-COLSP2013012238

PATIENT
  Age: 39 Year
  Sex: Female

DRUGS (10)
  1. ENBREL [Suspect]
     Indication: RHEUMATOID ARTHRITIS
     Dosage: 50 MG, WEEKLY
     Route: 058
  2. ENBREL [Suspect]
     Dosage: 50 MG, WEEKLY
     Route: 058
     Dates: start: 20130201
  3. METHOTREXATE [Concomitant]
     Indication: RHEUMATOID ARTHRITIS
     Dosage: 6 TABLETS OF 2.5MG, WEEKLY
     Route: 048
     Dates: start: 2000
  4. FLUOXETINE [Concomitant]
     Dosage: 20 MG, 2X/DAY
     Route: 048
  5. CALCITRIOL [Concomitant]
     Dosage: 25 MG, 1X/DAY
     Route: 048
  6. FOLIC ACID [Concomitant]
     Dosage: 20 MG, 1X/DAY
     Route: 048
  7. OMEPRAZOL                          /00661201/ [Concomitant]
     Dosage: 20 MG, 1X/DAY
     Route: 048
  8. CALCIUM WITH VITAMIN D             /00944201/ [Concomitant]
     Dosage: 600 MG, UNK
     Route: 065
  9. PREDNISOLON                        /00016201/ [Concomitant]
     Dosage: 5 MG, 2X/DAY
     Route: 048
  10. LEFLUNOMIDE [Concomitant]
     Dosage: 20 MG, 1X/DAY
     Route: 048

REACTIONS (6)
  - Menorrhagia [Not Recovered/Not Resolved]
  - Menstruation irregular [Not Recovered/Not Resolved]
  - Wrong technique in drug usage process [Recovered/Resolved]
  - Headache [Not Recovered/Not Resolved]
  - Abdominal pain lower [Not Recovered/Not Resolved]
  - Injection site rash [Recovered/Resolved]
